FAERS Safety Report 9528602 (Version 3)
Quarter: 2013Q4

REPORT INFORMATION
  Report Type: Spontaneous
  Country: US (occurrence: US)
  Receive Date: 20130917
  Receipt Date: 20131231
  Transmission Date: 20140711
  Serious: Yes (Death, Hospitalization, Other)
  Sender: FDA-Public Use
  Company Number: US-009507513-1309USA005391

PATIENT
  Sex: Female
  Weight: 104.31 kg

DRUGS (15)
  1. FOSAMAX [Suspect]
     Indication: OSTEOPOROSIS
     Dosage: 70 MG, QW
     Route: 048
     Dates: start: 20021030, end: 201107
  2. FOSAMAX [Suspect]
     Indication: OSTEOPENIA
  3. ALENDRONATE SODIUM [Suspect]
     Indication: OSTEOPOROSIS
     Dosage: 70 MG, UNK
     Route: 048
     Dates: end: 20111120
  4. ALENDRONATE SODIUM [Suspect]
     Indication: OSTEOPENIA
  5. AMOXICILLIN [Concomitant]
     Indication: INFECTION
     Dosage: UNK
     Dates: start: 19990920, end: 20061208
  6. AMOXI/CLAV [Concomitant]
     Indication: INFECTION
     Dosage: UNK
     Dates: start: 20061103, end: 20100811
  7. OS-CAL (CALCIUM (UNSPECIFIED) (+) VITAMIN D (UNSPECIFIED)) [Concomitant]
     Indication: OSTEOPENIA
     Dosage: 500 MG, UNK
     Route: 048
  8. CLARITIN [Concomitant]
     Indication: HYPERSENSITIVITY
  9. VERAPAMIL [Concomitant]
     Indication: PALPITATIONS
  10. LIPITOR [Concomitant]
     Indication: HYPERLIPIDAEMIA
     Dosage: UNK
  11. ZANTAC [Concomitant]
     Indication: GASTROOESOPHAGEAL REFLUX DISEASE
     Dosage: 150 MG, BID
  12. MAXIDE [Concomitant]
     Indication: HYPERTENSION
  13. DIOVAN [Concomitant]
     Indication: HYPERTENSION
     Dosage: 80 MG, QD
     Route: 048
  14. CELEBREX [Concomitant]
     Indication: OSTEOARTHRITIS
  15. FLUVOXAMINE MALEATE [Concomitant]
     Indication: OBSESSIVE-COMPULSIVE DISORDER
     Dosage: 50 MG, HS
     Route: 048

REACTIONS (48)
  - Femur fracture [Unknown]
  - Intramedullary rod insertion [Unknown]
  - Convulsion [Unknown]
  - Atrial fibrillation [Recovering/Resolving]
  - Acute myocardial infarction [Fatal]
  - Cardiogenic shock [Fatal]
  - Coronary artery disease [Fatal]
  - Renal failure acute [Unknown]
  - Sepsis [Unknown]
  - Hypersensitivity [Unknown]
  - Low turnover osteopathy [Unknown]
  - Device breakage [Unknown]
  - Hand fracture [Unknown]
  - Foot fracture [Unknown]
  - Haemorrhagic anaemia [Unknown]
  - Anxiety [Unknown]
  - Insomnia [Unknown]
  - Asthma [Unknown]
  - Hot flush [Unknown]
  - Hypertonic bladder [Unknown]
  - Bacterial infection [Unknown]
  - Vaginal infection [Unknown]
  - Ecchymosis [Unknown]
  - Laceration [Unknown]
  - Osteoarthritis [Unknown]
  - Heart rate increased [Unknown]
  - Osteoarthritis [Unknown]
  - Bipolar disorder [Unknown]
  - Drug intolerance [Unknown]
  - Adenotonsillectomy [Unknown]
  - Fibromyalgia [Unknown]
  - Chronic fatigue syndrome [Not Recovered/Not Resolved]
  - Sleep apnoea syndrome [Unknown]
  - Lung disorder [Unknown]
  - Treatment noncompliance [Unknown]
  - Upper gastrointestinal haemorrhage [Unknown]
  - Inflammation [Unknown]
  - Orbital oedema [Unknown]
  - Local swelling [Unknown]
  - Gait disturbance [Unknown]
  - Haematoma [Unknown]
  - Fall [Unknown]
  - Acute pulmonary oedema [Unknown]
  - Fall [Unknown]
  - Neck pain [Unknown]
  - Bone pain [Unknown]
  - Myalgia [Unknown]
  - Asthenia [Unknown]
